FAERS Safety Report 19462760 (Version 2)
Quarter: 2021Q2

REPORT INFORMATION
  Report Type: Spontaneous
  Country: CN (occurrence: CN)
  Receive Date: 20210625
  Receipt Date: 20210630
  Transmission Date: 20210717
  Serious: Yes (Death, Other)
  Sender: FDA-Public Use
  Company Number: CN-PFIZER INC-2021703125

PATIENT
  Age: 71 Year
  Sex: Male

DRUGS (7)
  1. SOLU?MEDROL [Suspect]
     Active Substance: METHYLPREDNISOLONE SODIUM SUCCINATE
     Indication: PNEUMONIA
  2. DALTEPARIN SODIUM [Suspect]
     Active Substance: DALTEPARIN SODIUM
     Indication: SEPTIC SHOCK
     Dosage: 5000 IU, 1X/DAY
     Route: 058
     Dates: start: 20210522, end: 20210603
  3. SODIUM CHLORIDE. [Concomitant]
     Active Substance: SODIUM CHLORIDE
     Indication: VEHICLE SOLUTION USE
     Dosage: 20 ML, 1X/DAY
     Dates: start: 20210522, end: 20210603
  4. SOLU?MEDROL [Suspect]
     Active Substance: METHYLPREDNISOLONE SODIUM SUCCINATE
     Indication: ANTIINFLAMMATORY THERAPY
  5. SOLU?MEDROL [Suspect]
     Active Substance: METHYLPREDNISOLONE SODIUM SUCCINATE
     Indication: SEPTIC SHOCK
     Dosage: 40 MG, 1X/DAY
     Dates: start: 20210522, end: 20210603
  6. DALTEPARIN SODIUM [Suspect]
     Active Substance: DALTEPARIN SODIUM
     Indication: PNEUMONIA
  7. SOLU?MEDROL [Suspect]
     Active Substance: METHYLPREDNISOLONE SODIUM SUCCINATE
     Indication: ANTICOAGULANT THERAPY

REACTIONS (6)
  - Haematemesis [Unknown]
  - Blood pressure decreased [Unknown]
  - Upper gastrointestinal haemorrhage [Fatal]
  - Cardiac arrest [Unknown]
  - Respiratory arrest [Unknown]
  - Melaena [Unknown]

NARRATIVE: CASE EVENT DATE: 20210603
